FAERS Safety Report 22794667 (Version 5)
Quarter: 2023Q4

REPORT INFORMATION
  Report Type: Spontaneous
  Country: US (occurrence: US)
  Receive Date: 20230807
  Receipt Date: 20231204
  Transmission Date: 20240110
  Serious: Yes (Hospitalization, Other)
  Sender: FDA-Public Use
  Company Number: US-BRISTOL-MYERS SQUIBB COMPANY-2023-110593

PATIENT
  Age: 84 Year
  Sex: Male

DRUGS (3)
  1. LENALIDOMIDE [Suspect]
     Active Substance: LENALIDOMIDE
     Indication: Plasma cell myeloma
     Dosage: TAKE 1 CAPSULE BY MOUTH EVERY DAY FOR 3 WEEKS ON THEN 1 WEEK OFF
     Route: 048
     Dates: start: 20180612
  2. LENALIDOMIDE [Suspect]
     Active Substance: LENALIDOMIDE
     Dosage: TAKE 1 WHOLE  CAPSULE BY MOUTH WITH WATER AT THE SAME TIME EVERY DAY ON DAYS 1-21 OF EACH 28 DAY CYC
     Route: 048
     Dates: start: 20230627
  3. LENALIDOMIDE [Suspect]
     Active Substance: LENALIDOMIDE
     Dosage: TAKE 1 CAPSULE BY MOUTH EVERY DAY FOR 14 DAYS OF A 21 DAY CYCLE
     Route: 048
     Dates: start: 20230627, end: 20230919

REACTIONS (16)
  - Burning sensation [Unknown]
  - Ulcer [Unknown]
  - Thrombosis [Not Recovered/Not Resolved]
  - Tooth loss [Unknown]
  - Off label use [Unknown]
  - Fatigue [Unknown]
  - Decreased appetite [Unknown]
  - Neuropathy peripheral [Unknown]
  - Dizziness postural [Unknown]
  - Fall [Unknown]
  - Traumatic intracranial haemorrhage [Unknown]
  - Spinal fracture [Unknown]
  - Pneumonia [Unknown]
  - COVID-19 [Unknown]
  - Somnolence [Unknown]
  - Throat irritation [Unknown]

NARRATIVE: CASE EVENT DATE: 20190101
